FAERS Safety Report 6091355-3 (Version None)
Quarter: 2009Q1

REPORT INFORMATION
  Report Type: 
  Country: None (occurrence: None)
  Receive Date: 20090225
  Receipt Date: 20090220
  Transmission Date: 20090719
  Serious: No
  Sender: FDA-Public Use
  Company Number: DE-ASTRAZENECA-2009PK00634

PATIENT
  Age: 35 Year
  Sex: Male

DRUGS (2)
  1. SEROQUEL [Suspect]
     Route: 048
     Dates: start: 20090101, end: 20090201
  2. CIPRAMIL [Concomitant]
     Route: 048
     Dates: start: 20090201

REACTIONS (1)
  - NEUTROPENIA [None]
